FAERS Safety Report 17075810 (Version 3)
Quarter: 2020Q4

REPORT INFORMATION
  Report Type: Spontaneous
  Country: US (occurrence: US)
  Receive Date: 20191126
  Receipt Date: 20201126
  Transmission Date: 20210113
  Serious: No
  Sender: FDA-Public Use
  Company Number: US-PFIZER INC-2019511347

PATIENT
  Age: 71 Year
  Sex: Female
  Weight: 69.84 kg

DRUGS (7)
  1. XELJANZ [Suspect]
     Active Substance: TOFACITINIB CITRATE
     Indication: RHEUMATOID ARTHRITIS
     Dosage: 5 MG, 2X/DAY
     Route: 048
     Dates: start: 2016
  2. FISH OIL [Concomitant]
     Active Substance: FISH OIL
     Dosage: UNK, DAILY [1 PER DAY]
  3. GLUCOSAMINE CHONDROITIN [CHONDROITIN SULFATE;GLUCOSAMINE] [Concomitant]
     Dosage: UNK [2 PER DAY]
  4. SYNTHROID [Concomitant]
     Active Substance: LEVOTHYROXINE SODIUM
     Dosage: 88 UG, UNK
     Dates: start: 2006
  5. CALCIUM [Concomitant]
     Active Substance: CALCIUM
     Dosage: 2400 MG, DAILY [2 PER DAY]
  6. WARFARIN SODIUM. [Concomitant]
     Active Substance: WARFARIN SODIUM
     Dosage: UNK (10 MG - M - F, 5 MG - S+ S)
     Dates: start: 2015
  7. VITAMIN D3 [Concomitant]
     Active Substance: CHOLECALCIFEROL
     Dosage: UNK, 1X/DAY [1 PER DAY]

REACTIONS (1)
  - Malaise [Unknown]
